FAERS Safety Report 6991792-6 (Version None)
Quarter: 2010Q3

REPORT INFORMATION
  Report Type: 
  Country: None (occurrence: None)
  Receive Date: 20100917
  Receipt Date: 20100907
  Transmission Date: 20110219
  Serious: Yes (Other)
  Sender: FDA-Public Use
  Company Number: US-PFIZER INC-2010113672

PATIENT
  Sex: Female
  Weight: 64 kg

DRUGS (9)
  1. XALATAN [Suspect]
     Indication: GLAUCOMA
     Dosage: ONE DROP IN EACH EYE ONCE DAILY
     Route: 047
     Dates: start: 20080101
  2. VICODIN [Concomitant]
     Indication: CARPAL TUNNEL SYNDROME
     Dosage: UNK
  3. VICODIN [Concomitant]
     Indication: NECK PAIN
  4. VICODIN [Concomitant]
     Indication: BACK PAIN
  5. LIDODERM [Concomitant]
     Indication: NECK PAIN
     Dosage: UNK
     Route: 062
  6. LIDODERM [Concomitant]
     Indication: BACK PAIN
  7. ROBINUL [Concomitant]
     Indication: GASTRIC DISORDER
     Dosage: UNK
  8. OMEPRAZOLE [Concomitant]
     Dosage: UNK
  9. VITAMIN D [Concomitant]
     Dosage: 50,000 MG, UNK

REACTIONS (3)
  - EYE PAIN [None]
  - INCORRECT DOSE ADMINISTERED [None]
  - VISION BLURRED [None]
